FAERS Safety Report 5165250-8 (Version None)
Quarter: 2006Q4

REPORT INFORMATION
  Report Type: 
  Country: None (occurrence: None)
  Receive Date: 20061124
  Receipt Date: 20061116
  Transmission Date: 20070319
  Serious: Yes (Other)
  Sender: FDA-Public Use
  Company Number: 2006141301

PATIENT
  Age: 59 Year
  Sex: Female

DRUGS (2)
  1. NIFEDIPINE [Suspect]
     Dosage: 60 MG (DAILY), ORAL
     Route: 048
  2. CAPTOPRIL [Suspect]
     Dosage: 25 MG (DAILY), ORAL
     Route: 048

REACTIONS (2)
  - ANGIONEUROTIC OEDEMA [None]
  - OEDEMA PERIPHERAL [None]
